FAERS Safety Report 6847302-7 (Version None)
Quarter: 2010Q3

REPORT INFORMATION
  Report Type: 
  Country: None (occurrence: None)
  Receive Date: 20100716
  Receipt Date: 20100712
  Transmission Date: 20110219
  Serious: Yes (Death)
  Sender: FDA-Public Use
  Company Number: JP-JNJFOC-20100601466

PATIENT
  Sex: Male
  Weight: 49 kg

DRUGS (25)
  1. DUROTEP MT PATCH [Suspect]
     Indication: ARTHRALGIA
     Route: 062
  2. DUROTEP MT PATCH [Suspect]
     Route: 062
  3. DUROTEP MT PATCH [Suspect]
     Indication: BACK PAIN
     Route: 062
  4. DUROTEP MT PATCH [Suspect]
     Route: 062
  5. DUROTEP MT PATCH [Suspect]
     Indication: SCLERODERMA
     Route: 062
  6. DUROTEP MT PATCH [Suspect]
     Route: 062
  7. CODEINE [Suspect]
     Indication: SCLERODERMA
     Route: 048
  8. LAXATIVES [Concomitant]
  9. PENTAZOCINE LACTATE [Concomitant]
     Indication: SCLERODERMA
     Route: 030
  10. PENTAZOCINE LACTATE [Concomitant]
     Route: 030
  11. PENTAZOCINE LACTATE [Concomitant]
     Route: 030
  12. PENTAZOCINE LACTATE [Concomitant]
     Route: 030
  13. PENTAZOCINE LACTATE [Concomitant]
     Route: 030
  14. PENTAZOCINE LACTATE [Concomitant]
     Route: 030
  15. PENTAZOCINE LACTATE [Concomitant]
     Route: 030
  16. PENTAZOCINE LACTATE [Concomitant]
     Route: 030
  17. PENTAZOCINE LACTATE [Concomitant]
     Route: 030
  18. PREDONINE [Concomitant]
     Indication: SCLERODERMA
     Route: 048
  19. RABEPRAZOLE SODIUM [Concomitant]
     Indication: REFLUX OESOPHAGITIS
     Route: 048
  20. THYRADIN S [Concomitant]
     Indication: HYPOTHYROIDISM
     Route: 048
  21. AMARYL [Concomitant]
     Indication: DIABETES MELLITUS
     Route: 048
  22. BERAPROST SODIUM [Concomitant]
     Indication: THROMBOANGIITIS OBLITERANS
     Route: 048
  23. LENDORMIN [Concomitant]
     Indication: INSOMNIA
     Route: 048
  24. BENZALIN [Concomitant]
     Indication: INSOMNIA
     Route: 048
  25. LASIX [Concomitant]
     Indication: OEDEMA
     Route: 048

REACTIONS (2)
  - MYOCARDIAL INFARCTION [None]
  - OVERDOSE [None]
